FAERS Safety Report 8462189-7 (Version None)
Quarter: 2012Q2

REPORT INFORMATION
  Report Type: 
  Country: None (occurrence: None)
  Receive Date: 20120625
  Receipt Date: 20120618
  Transmission Date: 20120825
  Serious: Yes (Other)
  Sender: FDA-Public Use
  Company Number: PHHY2010JP82670

PATIENT
  Sex: Female
  Weight: 61 kg

DRUGS (1)
  1. IMATINIB MESYLATE [Suspect]
     Route: 048

REACTIONS (3)
  - DELIVERY [None]
  - EXPOSURE VIA FATHER [None]
  - THREATENED LABOUR [None]
